FAERS Safety Report 21378892 (Version 3)
Quarter: 2022Q4

REPORT INFORMATION
  Report Type: Report from Study
  Country: GB (occurrence: GB)
  Receive Date: 20220927
  Receipt Date: 20221129
  Transmission Date: 20230113
  Serious: Yes (Death, Other)
  Sender: FDA-Public Use
  Company Number: GB-BRISTOL-MYERS SQUIBB COMPANY-2022-111833

PATIENT
  Age: 71 Year
  Sex: Male

DRUGS (9)
  1. POMALIDOMIDE [Suspect]
     Active Substance: POMALIDOMIDE
     Indication: Plasma cell myeloma
     Dosage: FREQUENCY TEXT: NOT PROVIDED?4 MILLIGRAM
     Route: 065
     Dates: start: 20150806, end: 20150826
  2. POMALIDOMIDE [Suspect]
     Active Substance: POMALIDOMIDE
     Dosage: FREQUENCY TEXT: NOT PROVIDED?4 MILLIGRAM
     Route: 048
     Dates: start: 20171116, end: 20171206
  3. POMALIDOMIDE [Suspect]
     Active Substance: POMALIDOMIDE
     Route: 065
     Dates: start: 20150827, end: 20150902
  4. DEXAMETHASONE [Suspect]
     Active Substance: DEXAMETHASONE
     Indication: Plasma cell myeloma
     Dosage: FREQUENCY TEXT: NOT PROVIDED?40 MILLIGRAM
     Route: 048
     Dates: start: 20150806
  5. DEXAMETHASONE [Suspect]
     Active Substance: DEXAMETHASONE
     Indication: Product used for unknown indication
     Dosage: FREQUENCY TEXT: NOT PROVIDED?20 MILLIGRAM
     Route: 065
     Dates: start: 20171116
  6. DEXAMETHASONE [Suspect]
     Active Substance: DEXAMETHASONE
     Dosage: FREQUENCY TEXT: NOT PROVIDED?20 MILLIGRAM
     Route: 065
     Dates: start: 20171207
  7. DEXAMETHASONE [Suspect]
     Active Substance: DEXAMETHASONE
     Route: 065
     Dates: start: 20150813
  8. DEXAMETHASONE [Suspect]
     Active Substance: DEXAMETHASONE
     Route: 065
     Dates: start: 20150820
  9. DEXAMETHASONE [Suspect]
     Active Substance: DEXAMETHASONE
     Route: 065
     Dates: start: 20150827

REACTIONS (2)
  - Acute kidney injury [Fatal]
  - Plasma cell myeloma refractory [Fatal]
